FAERS Safety Report 10069618 (Version 2)
Quarter: 2014Q2

REPORT INFORMATION
  Report Type: Spontaneous
  Country: US (occurrence: US)
  Receive Date: 20140410
  Receipt Date: 20140425
  Transmission Date: 20141212
  Serious: Yes (Hospitalization)
  Sender: FDA-Public Use
  Company Number: US-BIOGENIDEC-2014BI032591

PATIENT
  Age: 61 Year
  Sex: Female

DRUGS (23)
  1. AVONEX [Suspect]
     Indication: MULTIPLE SCLEROSIS
     Route: 030
     Dates: start: 20121008
  2. ADVAIR DISKUS [Concomitant]
  3. ALBUTEROL SULFATE [Concomitant]
  4. ALDACTONE [Concomitant]
  5. AMITIZA [Concomitant]
  6. DELESTROGEN [Concomitant]
  7. FUROSEMIDE [Concomitant]
  8. IMITREX [Concomitant]
  9. JANUVIA [Concomitant]
  10. KLOR-CON [Concomitant]
  11. METOCLOPRAMIDE HCL [Concomitant]
  12. MYRBETRIQ [Concomitant]
  13. NEXIUM [Concomitant]
  14. NITROGLYCERIN ER [Concomitant]
  15. NORTRIPTYLINE HCL [Concomitant]
  16. OXYCONTIN [Concomitant]
  17. PLAQUENIL [Concomitant]
  18. PREDNISONE [Concomitant]
  19. SINGULAIR [Concomitant]
  20. TOPROL XL [Concomitant]
  21. TRIAMTERENE-HCTZ [Concomitant]
  22. ZEMPLAR [Concomitant]
  23. ZOLOFT [Concomitant]

REACTIONS (3)
  - Fibromyalgia [Unknown]
  - Systemic lupus erythematosus [Unknown]
  - Muscular weakness [Unknown]
